FAERS Safety Report 5084394-2 (Version None)
Quarter: 2006Q3

REPORT INFORMATION
  Report Type: 
  Country: None (occurrence: None)
  Receive Date: 20060817
  Receipt Date: 20060817
  Transmission Date: 20061208
  Serious: Yes (Life-Threatening)
  Sender: FDA-Public Use
  Company Number: None

PATIENT
  Age: 56 Year
  Sex: Female
  Weight: 33.5 kg

DRUGS (1)
  1. FERRLECIT [Suspect]
     Indication: IRON DEFICIENCY ANAEMIA
     Dosage: 250MG Q24H X 4 DOSES IV
     Route: 042
     Dates: start: 20060327, end: 20060327

REACTIONS (3)
  - ADVERSE DRUG REACTION [None]
  - EYE ROLLING [None]
  - LOSS OF CONSCIOUSNESS [None]
